FAERS Safety Report 22807290 (Version 4)
Quarter: 2024Q2

REPORT INFORMATION
  Report Type: Spontaneous
  Country: JP (occurrence: JP)
  Receive Date: 20230810
  Receipt Date: 20240605
  Transmission Date: 20240715
  Serious: Yes (Death, Other)
  Sender: FDA-Public Use
  Company Number: JP-ALXN-A202310200

PATIENT
  Age: 7 Decade
  Sex: Female
  Weight: 43 kg

DRUGS (1)
  1. ULTOMIRIS [Suspect]
     Active Substance: RAVULIZUMAB-CWVZ
     Indication: Paroxysmal nocturnal haemoglobinuria
     Dosage: 3000 MG, UNK
     Route: 042

REACTIONS (2)
  - Paroxysmal nocturnal haemoglobinuria [Fatal]
  - Condition aggravated [Fatal]
